FAERS Safety Report 5445888-0 (Version None)
Quarter: 2007Q3

REPORT INFORMATION
  Report Type: 
  Country: None (occurrence: None)
  Receive Date: 20070731
  Receipt Date: 20070222
  Transmission Date: 20080115
  Serious: Yes (Hospitalization)
  Sender: FDA-Public Use
  Company Number: 153206USA

PATIENT
  Age: 3 Year
  Sex: Male

DRUGS (2)
  1. AMOXICILLIN [Suspect]
     Indication: SINUSITIS
     Dosage: 4 ML TWICE DAILY,ORAL
     Route: 048
     Dates: start: 20061229
  2. OSELTAMIVIR [Suspect]
     Indication: INFLUENZA
     Dosage: 4ML TWICE DAILY, ORAL
     Route: 048
     Dates: start: 20061219

REACTIONS (1)
  - SERUM SICKNESS [None]
